FAERS Safety Report 14701081 (Version 2)
Quarter: 2018Q2

REPORT INFORMATION
  Report Type: Spontaneous
  Country: US (occurrence: US)
  Receive Date: 20180330
  Receipt Date: 20180413
  Transmission Date: 20180711
  Serious: Yes (Hospitalization)
  Sender: FDA-Public Use
  Company Number: US-JNJFOC-20180321407

PATIENT
  Age: 26 Year
  Sex: Female
  Weight: 55.79 kg

DRUGS (4)
  1. ZYRTEC [Concomitant]
     Active Substance: CETIRIZINE HYDROCHLORIDE
     Indication: MULTIPLE ALLERGIES
     Route: 065
     Dates: start: 201710
  2. ZOFRAN [Concomitant]
     Active Substance: ONDANSETRON HYDROCHLORIDE
     Indication: NAUSEA
     Dosage: 0.05
     Route: 065
     Dates: start: 201801
  3. STELARA [Suspect]
     Active Substance: USTEKINUMAB
     Indication: CROHN^S DISEASE
     Route: 058
     Dates: start: 20171212, end: 201803
  4. KARIVA [Concomitant]
     Active Substance: DESOGESTREL\ETHINYL ESTRADIOL
     Indication: ORAL CONTRACEPTION
     Dosage: 0.05
     Route: 065
     Dates: start: 201710

REACTIONS (2)
  - Influenza [Unknown]
  - Pulmonary necrosis [Recovering/Resolving]

NARRATIVE: CASE EVENT DATE: 201801
